FAERS Safety Report 21530614 (Version 1)
Quarter: 2022Q4

REPORT INFORMATION
  Report Type: Spontaneous
  Country: LT (occurrence: LT)
  Receive Date: 20221031
  Receipt Date: 20221031
  Transmission Date: 20230113
  Serious: Yes (Other)
  Sender: FDA-Public Use
  Company Number: LT-KRKA-LT2022K13326LIT

PATIENT
  Age: 64 Year
  Sex: Female

DRUGS (15)
  1. PENTOXIFYLLINE [Suspect]
     Active Substance: PENTOXIFYLLINE
     Indication: Product used for unknown indication
     Dosage: 400-800 MG, PER DAY
     Route: 065
  2. PIRACETAM [Suspect]
     Active Substance: PIRACETAM
     Indication: Product used for unknown indication
     Route: 065
  3. TIAPRIDE HYDROCHLORIDE [Suspect]
     Active Substance: TIAPRIDE HYDROCHLORIDE
     Indication: Product used for unknown indication
     Route: 065
  4. TIAPRIDE HYDROCHLORIDE [Suspect]
     Active Substance: TIAPRIDE HYDROCHLORIDE
     Route: 065
  5. BROMAZEPAM [Suspect]
     Active Substance: BROMAZEPAM
     Indication: Product used for unknown indication
     Dosage: BROMAZEPAM WORLD
     Route: 065
  6. GINKGO [Suspect]
     Active Substance: GINKGO
     Indication: Product used for unknown indication
     Route: 065
  7. VINPOCETINE [Suspect]
     Active Substance: VINPOCETINE
     Indication: Product used for unknown indication
     Route: 065
  8. VINPOCETINE [Suspect]
     Active Substance: VINPOCETINE
     Dosage: 20-30 MG, PER DAY
     Route: 065
  9. ACETAMINOPHEN\CODEINE PHOSPHATE [Suspect]
     Active Substance: ACETAMINOPHEN\CODEINE PHOSPHATE
     Indication: Product used for unknown indication
     Route: 065
  10. QUETIAPINE [Suspect]
     Active Substance: QUETIAPINE
     Indication: Product used for unknown indication
     Dosage: QUETIAPINE GENERIC
     Route: 065
     Dates: start: 201905
  11. QUETIAPINE [Suspect]
     Active Substance: QUETIAPINE
     Route: 065
     Dates: start: 201911
  12. ASPIRIN [Suspect]
     Active Substance: ASPIRIN
     Indication: Product used for unknown indication
     Dosage: 150 MG EVERY 2ND EVENING
     Route: 065
  13. PRAMIRACETAM SULFATE [Suspect]
     Active Substance: PRAMIRACETAM SULFATE
     Indication: Product used for unknown indication
     Route: 065
  14. VALPROATE SODIUM [Suspect]
     Active Substance: VALPROATE SODIUM
     Indication: Product used for unknown indication
     Dosage: SODIUM VALPROATE WORLD
     Route: 065
  15. SULPIRIDE [Suspect]
     Active Substance: SULPIRIDE
     Indication: Product used for unknown indication
     Route: 065

REACTIONS (13)
  - Transient ischaemic attack [Unknown]
  - Drug ineffective [Unknown]
  - Aggression [Unknown]
  - Visual acuity reduced [Unknown]
  - Balance disorder [Unknown]
  - Speech disorder [Unknown]
  - Dysphemia [Unknown]
  - Tremor [Unknown]
  - Insomnia [Unknown]
  - Vascular headache [Unknown]
  - Headache [Unknown]
  - Dizziness [Unknown]
  - Vision blurred [Unknown]
